FAERS Safety Report 11869536 (Version 1)
Quarter: 2015Q4

REPORT INFORMATION
  Report Type: Spontaneous
  Country: AU (occurrence: AU)
  Receive Date: 20151228
  Receipt Date: 20151228
  Transmission Date: 20160305
  Serious: Yes (Congenital Anomaly, Other)
  Sender: FDA-Public Use
  Company Number: AU-CIPLA LTD.-2015AU09787

PATIENT

DRUGS (1)
  1. RISPERIDONE. [Suspect]
     Active Substance: RISPERIDONE
     Route: 064

REACTIONS (2)
  - Foetal exposure during pregnancy [Unknown]
  - CHARGE syndrome [Unknown]
